FAERS Safety Report 8226397-2 (Version None)
Quarter: 2012Q1

REPORT INFORMATION
  Report Type: 
  Country: None (occurrence: None)
  Receive Date: 20120307
  Receipt Date: 20100908
  Transmission Date: 20120608
  Serious: Yes (Death, Hospitalization)
  Sender: FDA-Public Use
  Company Number: PHHY2010US49843

PATIENT
  Age: 50 Year
  Sex: Female
  Weight: 78.9 kg

DRUGS (23)
  1. BACTROBAN OINTMENT (MUPIROCIN CALCIUM) [Concomitant]
  2. DECADRON [Concomitant]
  3. COMPAZINE [Concomitant]
  4. MAGNESIUM OXIDE [Concomitant]
  5. HYDROCORTISON (HYDROCORTISONE SODIUM SUCCINATE) [Concomitant]
  6. LACTULOSE [Concomitant]
  7. AFINITOR [Suspect]
     Indication: RENAL CELL CARCINOMA
     Dosage: 10MG/DAY, ORAL; 5 MG AND 10 MG DAILY, ORAL; 15MG/DAY, ORAL
     Route: 048
     Dates: start: 20100511, end: 20100602
  8. AFINITOR [Suspect]
     Indication: RENAL CANCER
     Dosage: 10MG/DAY, ORAL; 5 MG AND 10 MG DAILY, ORAL; 15MG/DAY, ORAL
     Route: 048
     Dates: start: 20100511, end: 20100602
  9. ACETAMINOPHEN [Concomitant]
  10. GLYBURIDE [Concomitant]
  11. GEMFIBROZIL [Concomitant]
  12. SODIUM CHLORIDE [Concomitant]
  13. SONATA [Concomitant]
  14. TEMAZEPAM [Concomitant]
  15. ATIVAN [Concomitant]
  16. OMEPRAZOLE [Concomitant]
  17. VITAMIN D [Concomitant]
  18. SUTENT [Concomitant]
  19. FLUCONAZOLE [Concomitant]
  20. ZOFRAN [Concomitant]
  21. VICODIN [Concomitant]
  22. LANTUS [Concomitant]
  23. POTASSIUM CHLORIDE [Concomitant]

REACTIONS (4)
  - RESPIRATORY FAILURE [None]
  - PNEUMONIA ESCHERICHIA [None]
  - HYPOXIA [None]
  - NEOPLASM MALIGNANT [None]
